FAERS Safety Report 6664244-0 (Version None)
Quarter: 2010Q2

REPORT INFORMATION
  Report Type: 
  Country: None (occurrence: None)
  Receive Date: 20100401
  Receipt Date: 20100322
  Transmission Date: 20101027
  Serious: Yes (Disabling, Other)
  Sender: FDA-Public Use
  Company Number: PHHY2010FI09180

PATIENT
  Sex: Male

DRUGS (5)
  1. CLOZAPINE [Suspect]
     Indication: SCHIZOPHRENIA
     Dosage: 800 MG/DAY
     Dates: start: 20060801, end: 20100219
  2. PANDEMRIX [Suspect]
     Indication: IMMUNISATION
     Dosage: UNK
     Dates: start: 20100125
  3. SERONIL [Concomitant]
     Indication: ANTIPSYCHOTIC DRUG LEVEL BELOW THERAPEUTIC
     Dosage: 10 MG/DAY
     Dates: start: 20080404, end: 20100223
  4. DIAPAM [Concomitant]
     Dosage: 10 MG 1 TO 3 TIMES A DAY
     Dates: start: 20100219
  5. TENOX [Concomitant]
     Dosage: 20-40 MG FOR NIGHT
     Dates: start: 20100222

REACTIONS (7)
  - AGITATION [None]
  - C-REACTIVE PROTEIN INCREASED [None]
  - DIARRHOEA [None]
  - GENERAL PHYSICAL HEALTH DETERIORATION [None]
  - LEUKOPENIA [None]
  - NEUTROPENIA [None]
  - PYREXIA [None]
